FAERS Safety Report 19460803 (Version 1)
Quarter: 2021Q2

REPORT INFORMATION
  Report Type: Spontaneous
  Country: TH (occurrence: TH)
  Receive Date: 20210625
  Receipt Date: 20210625
  Transmission Date: 20210717
  Serious: Yes (Hospitalization)
  Sender: FDA-Public Use
  Company Number: TH-YILING-TH-2021-YPL-00060

PATIENT

DRUGS (4)
  1. NOT APPLICABLE [Concomitant]
     Active Substance: HYOSCYAMINE SULFATE
     Route: 047
  2. ACYCLOVIR. [Suspect]
     Active Substance: ACYCLOVIR
     Route: 048
  3. ACYCLOVIR. [Suspect]
     Active Substance: ACYCLOVIR
     Indication: KERATITIS
     Route: 048
  4. ACYCLOVIR. [Suspect]
     Active Substance: ACYCLOVIR
     Route: 048

REACTIONS (2)
  - Drug ineffective [Unknown]
  - Product use in unapproved indication [Unknown]
